FAERS Safety Report 6430168-7 (Version None)
Quarter: 2009Q4

REPORT INFORMATION
  Report Type: 
  Country: None (occurrence: None)
  Receive Date: 20091106
  Receipt Date: 20091027
  Transmission Date: 20100525
  Serious: Yes (Death)
  Sender: FDA-Public Use
  Company Number: PHEH2009US14595

PATIENT
  Sex: Female

DRUGS (11)
  1. GLEEVEC [Suspect]
     Indication: ACUTE LYMPHOCYTIC LEUKAEMIA
     Dosage: 400 MG, QD
     Route: 048
     Dates: start: 20090416
  2. PREVACID [Concomitant]
  3. PRAVASTATIN [Concomitant]
  4. SYNTHROID [Concomitant]
  5. BENICAR [Concomitant]
  6. DEXAMETHASONE [Concomitant]
  7. FLUCONAZOLE [Concomitant]
  8. CIPROFLOXACIN [Concomitant]
  9. ACYCLOVIR [Concomitant]
  10. ALLOPURINOL [Suspect]
  11. FOLIC ACID [Concomitant]

REACTIONS (1)
  - DEATH [None]
